FAERS Safety Report 8434645-9 (Version None)
Quarter: 2012Q2

REPORT INFORMATION
  Report Type: 
  Country: None (occurrence: None)
  Receive Date: 20120614
  Receipt Date: 20120605
  Transmission Date: 20120825
  Serious: Yes (Death, Hospitalization)
  Sender: FDA-Public Use
  Company Number: FR-BRISTOL-MYERS SQUIBB COMPANY-16665606

PATIENT
  Age: 42 Year
  Sex: Female

DRUGS (7)
  1. LEVOTHYROXINE SODIUM [Concomitant]
     Dosage: 1DF=75 UNITS NOS
  2. DEPAKOTE [Concomitant]
     Dosage: 1DF=500 UNITS NOS
  3. ATARAX [Concomitant]
     Dosage: 1DF=100 UNITS NOS
  4. HEPTAMINOL [Concomitant]
  5. SEROQUEL [Concomitant]
     Dosage: 1DF=300 UNITS NOS SEROQUEL SR
  6. COUMADIN [Suspect]
     Indication: THROMBOSIS PROPHYLAXIS
     Route: 048
     Dates: end: 20120207
  7. FOLIC ACID [Concomitant]

REACTIONS (2)
  - SUBDURAL HAEMATOMA [None]
  - FALL [None]
